FAERS Safety Report 5642465-3 (Version None)
Quarter: 2008Q1

REPORT INFORMATION
  Report Type: 
  Country: None (occurrence: None)
  Receive Date: 20080228
  Receipt Date: 20080220
  Transmission Date: 20080703
  Serious: Yes (Hospitalization)
  Sender: FDA-Public Use
  Company Number: BR-JNJFOC-20080205538

PATIENT
  Age: 22 Year
  Sex: Female
  Weight: 42 kg

DRUGS (5)
  1. ORTHO EVRA [Suspect]
     Indication: HORMONE LEVEL ABNORMAL
  2. ORTHO EVRA [Suspect]
     Indication: CONTRACEPTION
  3. AMLODIPINE [Concomitant]
  4. PROPRANOLOL [Concomitant]
  5. ATORVASTATIN CALCIUM [Concomitant]

REACTIONS (4)
  - ANAL NEOPLASM [None]
  - MEDICATION ERROR [None]
  - OFF LABEL USE [None]
  - PHARMACEUTICAL PRODUCT COMPLAINT [None]
